FAERS Safety Report 4907828-X (Version None)
Quarter: 2006Q1

REPORT INFORMATION
  Report Type: 
  Country: None (occurrence: None)
  Receive Date: 20060210
  Receipt Date: 20050715
  Transmission Date: 20060701
  Serious: Yes (Hospitalization)
  Sender: FDA-Public Use
  Company Number: HQWYE276419JUL05

PATIENT
  Sex: Female

DRUGS (12)
  1. ENBREL [Suspect]
     Indication: RHEUMATOID ARTHRITIS
     Route: 058
     Dates: start: 20050516, end: 20050627
  2. PREDONINE [Suspect]
     Dosage: DOSE AND FREQUENCY NOT SPECIFIED
     Route: 048
     Dates: end: 20050615
  3. PREDONINE [Suspect]
     Route: 048
     Dates: start: 20050616
  4. FELBINAC [Concomitant]
     Dosage: DOSE AND FREQUENCY NOT SPECIFIED
     Route: 062
  5. PARIET [Concomitant]
     Dosage: DOSE AND FREQUENCY NOT SPECIFIED
     Route: 048
  6. LIPITOR [Concomitant]
     Dosage: DOSE AND FREQUENCY NOT SPECIFIED
     Route: 048
  7. LOXONIN [Concomitant]
  8. AMLODIPINE [Concomitant]
  9. LASIX [Concomitant]
  10. ROCALTROL [Concomitant]
  11. VOLTAREN [Concomitant]
  12. DIOVAN [Concomitant]

REACTIONS (1)
  - CELLULITIS STAPHYLOCOCCAL [None]
